FAERS Safety Report 8771137 (Version 1)
Quarter: 2012Q4

REPORT INFORMATION
  Report Type: Report from Study
  Country: US (occurrence: US)
  Receive Date: 20120906
  Receipt Date: 20120906
  Transmission Date: 20130627
  Serious: Yes (Hospitalization)
  Sender: FDA-Public Use
  Company Number: US-SANOFI-AVENTIS-2012SA062315

PATIENT
  Age: 74 Year
  Sex: Female
  Weight: 79.36 kg

DRUGS (11)
  1. BLINDED THERAPY [Suspect]
     Indication: ATRIAL FIBRILLATION
     Route: 065
     Dates: start: 20120404, end: 20120822
  2. DIGOXIN [Concomitant]
     Indication: ATRIAL FIBRILLATION
  3. DIGITOXIN [Concomitant]
     Indication: ATRIAL FIBRILLATION
  4. LASIX [Concomitant]
     Indication: HYPERTENSION
  5. LEVEMIR FLEXPEN [Concomitant]
     Indication: DIABETES
     Route: 058
  6. ENOXAPARIN [Concomitant]
  7. MECLIZINE [Concomitant]
  8. METFORMIN [Concomitant]
  9. METOPROLOL SUCCINATE [Concomitant]
  10. POTASSIUM CHLORIDE [Concomitant]
  11. WARFARIN [Concomitant]

REACTIONS (2)
  - Atrial fibrillation [Recovered/Resolved]
  - Bradycardia [Recovered/Resolved]
